FAERS Safety Report 11008125 (Version 3)
Quarter: 2015Q2

REPORT INFORMATION
  Report Type: Spontaneous
  Country: US (occurrence: US)
  Receive Date: 20150410
  Receipt Date: 20150608
  Transmission Date: 20150821
  Serious: Yes (Hospitalization, Other)
  Sender: FDA-Public Use
  Company Number: US-AUROBINDO-AUR-APL-2015-03079

PATIENT
  Age: 63 Year
  Sex: Male

DRUGS (11)
  1. CLOMIPHENE CITRATE. [Suspect]
     Active Substance: CLOMIPHENE CITRATE
     Indication: DRUG INEFFECTIVE
     Dosage: 50 MG, ONCE A DAY
     Route: 065
  2. CLOMIPHENE CITRATE. [Suspect]
     Active Substance: CLOMIPHENE CITRATE
     Dosage: 50 MG, TWO TIMES A DAY
     Route: 065
  3. DIVALPROEX [Suspect]
     Active Substance: DIVALPROEX SODIUM
     Indication: CLUSTER HEADACHE
     Route: 065
  4. VERAPAMIL [Suspect]
     Active Substance: VERAPAMIL HYDROCHLORIDE
     Indication: CLUSTER HEADACHE
     Dosage: 640 MG, DAILY
     Route: 065
  5. TOPIRAMATE. [Suspect]
     Active Substance: TOPIRAMATE
     Indication: CLUSTER HEADACHE
     Dosage: 150 MG, UNK
     Route: 065
  6. BACLOFEN. [Suspect]
     Active Substance: BACLOFEN
     Indication: CLUSTER HEADACHE
     Dosage: UNK
     Route: 065
  7. LITHIUM. [Suspect]
     Active Substance: LITHIUM
     Indication: CLUSTER HEADACHE
     Dosage: UNK
     Route: 065
  8. GABAPENTIN. [Suspect]
     Active Substance: GABAPENTIN
     Indication: PRODUCT USED FOR UNKNOWN INDICATION
     Route: 065
  9. TOPIRAMATE. [Suspect]
     Active Substance: TOPIRAMATE
     Dosage: 50 MG, DAILY
     Route: 065
  10. VERAPAMIL [Suspect]
     Active Substance: VERAPAMIL HYDROCHLORIDE
     Dosage: 360 MG, DAILY
     Route: 065
  11. CLOMIPHENE CITRATE. [Suspect]
     Active Substance: CLOMIPHENE CITRATE
     Indication: HEADACHE
     Dosage: 50 MG, TWO TIMES A DAY
     Route: 065

REACTIONS (10)
  - Arrhythmia [Unknown]
  - Fatigue [Unknown]
  - Mood altered [Unknown]
  - Constipation [Unknown]
  - Decreased appetite [Unknown]
  - Ischaemia [Unknown]
  - Dyspnoea [Unknown]
  - Hyperammonaemia [Unknown]
  - Headache [Recovered/Resolved]
  - Drug ineffective [Unknown]
